FAERS Safety Report 9935801 (Version 1)
Quarter: 2014Q1

REPORT INFORMATION
  Report Type: Spontaneous
  Country: US (occurrence: US)
  Receive Date: 20140228
  Receipt Date: 20140228
  Transmission Date: 20141002
  Serious: No
  Sender: FDA-Public Use
  Company Number: US-AMGEN-USASP2013067991

PATIENT
  Age: 60 Year
  Sex: Female

DRUGS (6)
  1. ENBREL [Suspect]
     Indication: PRODUCT USED FOR UNKNOWN INDICATION
     Dosage: 50 MG, QWK
     Route: 058
  2. ESTROVEN [Concomitant]
     Dosage: UNK, NIGHT TIME
  3. METHOTREXATE [Concomitant]
     Dosage: 2.5 MG, UNK
  4. IBUPROFEN [Concomitant]
     Dosage: UNK
  5. MULTIVITAMINS, PLAIN [Concomitant]
     Dosage: UNK, ESSENTIAL
  6. FISH OIL [Concomitant]
     Dosage: UNK

REACTIONS (5)
  - Night sweats [Unknown]
  - Menopause [Unknown]
  - Injection site bruising [Unknown]
  - Injection site pain [Unknown]
  - Injection site haemorrhage [Unknown]
